FAERS Safety Report 17030573 (Version 1)
Quarter: 2019Q4

REPORT INFORMATION
  Report Type: Spontaneous
  Country: US (occurrence: US)
  Receive Date: 20191011
  Receipt Date: 20191011
  Transmission Date: 20200122
  Serious: No
  Sender: FDA-Public Use
  Company Number: None

PATIENT
  Age: 58 Year
  Sex: Female

DRUGS (1)
  1. ENBREL [Suspect]
     Active Substance: ETANERCEPT
     Route: 058
     Dates: start: 2012, end: 2019

REACTIONS (6)
  - Joint swelling [None]
  - Arthralgia [None]
  - Condition aggravated [None]
  - Fatigue [None]
  - Pain in extremity [None]
  - Peripheral swelling [None]

NARRATIVE: CASE EVENT DATE: 20191011
